FAERS Safety Report 23978796 (Version 1)
Quarter: 2024Q2

REPORT INFORMATION
  Report Type: Spontaneous
  Country: CN (occurrence: CN)
  Receive Date: 20240615
  Receipt Date: 20240615
  Transmission Date: 20240716
  Serious: Yes (Hospitalization, Other)
  Sender: FDA-Public Use
  Company Number: CN-PFIZER INC-PV202400075389

PATIENT
  Age: 59 Year
  Sex: Male
  Weight: 70 kg

DRUGS (1)
  1. AVIBACTAM SODIUM\CEFTAZIDIME [Suspect]
     Active Substance: AVIBACTAM SODIUM\CEFTAZIDIME
     Indication: Pneumonia
     Dosage: TIME INTERVAL: 0.33333333 DAYS
     Route: 041
     Dates: start: 20240528, end: 20240605

REACTIONS (1)
  - Thrombocytopenic purpura [Unknown]

NARRATIVE: CASE EVENT DATE: 20240605
